FAERS Safety Report 5468775-0 (Version None)
Quarter: 2007Q3

REPORT INFORMATION
  Report Type: 
  Country: None (occurrence: None)
  Receive Date: 20070926
  Receipt Date: 20070914
  Transmission Date: 20080115
  Serious: Yes (Other)
  Sender: FDA-Public Use
  Company Number: US-GENENTECH-247773

PATIENT

DRUGS (1)
  1. AVASTIN [Suspect]
     Indication: MACULAR DEGENERATION

REACTIONS (1)
  - ENDOPHTHALMITIS [None]
